FAERS Safety Report 9630727 (Version 1)
Quarter: 2013Q4

REPORT INFORMATION
  Report Type: Spontaneous
  Country: US (occurrence: None)
  Receive Date: 20131016
  Receipt Date: 20131016
  Transmission Date: 20140711
  Serious: No
  Sender: FDA-Public Use
  Company Number: None

PATIENT
  Age: 66 Year
  Sex: Female
  Weight: 86.4 kg

DRUGS (1)
  1. FENTANYL PATCH [Suspect]

REACTIONS (5)
  - Drug withdrawal syndrome [None]
  - Drug ineffective [None]
  - Muscle tightness [None]
  - Muscle spasms [None]
  - Product quality issue [None]
